FAERS Safety Report 20875719 (Version 1)
Quarter: 2022Q2

REPORT INFORMATION
  Report Type: Spontaneous
  Country: JP (occurrence: JP)
  Receive Date: 20220526
  Receipt Date: 20220526
  Transmission Date: 20220720
  Serious: Yes (Other)
  Sender: FDA-Public Use
  Company Number: JP-SUN PHARMACEUTICAL INDUSTRIES LTD-2022R1-337804

PATIENT
  Age: 65 Year
  Sex: Female

DRUGS (2)
  1. CARBOPLATIN [Suspect]
     Active Substance: CARBOPLATIN
     Indication: Ovarian cancer recurrent
     Dosage: 200 MG/BODY, GRADUALLY INCREASED AFTER THREE COURSES
     Route: 065
     Dates: start: 200502, end: 200601
  2. PACLITAXEL [Suspect]
     Active Substance: PACLITAXEL
     Indication: Ovarian cancer recurrent
     Dosage: 150 MG/BODY (135 MG/M2 X 75%), GRADUALLY INCREASED AFTER THREE COURSES
     Route: 065
     Dates: start: 200502, end: 200601

REACTIONS (1)
  - Myelodysplastic syndrome [Unknown]
